FAERS Safety Report 11988029 (Version 2)
Quarter: 2016Q2

REPORT INFORMATION
  Report Type: Report from Study
  Country: JP (occurrence: JP)
  Receive Date: 20160202
  Receipt Date: 20160511
  Transmission Date: 20160815
  Serious: No
  Sender: FDA-Public Use
  Company Number: JP-EISAI MEDICAL RESEARCH-EC-2016-014038

PATIENT
  Age: 72 Year
  Sex: Female
  Weight: 59 kg

DRUGS (13)
  1. LENVIMA [Suspect]
     Active Substance: LENVATINIB
     Route: 048
     Dates: start: 20151023, end: 20151026
  2. LENVIMA [Suspect]
     Active Substance: LENVATINIB
     Route: 048
     Dates: start: 20151015, end: 20151017
  3. LENVIMA [Suspect]
     Active Substance: LENVATINIB
     Route: 048
     Dates: start: 20151029, end: 20151104
  4. LENVIMA [Suspect]
     Active Substance: LENVATINIB
     Indication: PAPILLARY THYROID CANCER
     Route: 048
     Dates: start: 20151006, end: 20151009
  5. LEVOTHYROXINE SODIUM HYDRATE [Concomitant]
  6. LENVIMA [Suspect]
     Active Substance: LENVATINIB
     Route: 048
     Dates: start: 20151019, end: 20151021
  7. PYDOXAL [Concomitant]
     Active Substance: PYRIDOXAL
  8. AZILVA [Concomitant]
     Active Substance: AZILSARTAN KAMEDOXOMIL
  9. KERATINAMIN [Concomitant]
     Active Substance: UREA
  10. HIRUDOID [Concomitant]
     Active Substance: GLYCOSAMINOGLYCANS
  11. MYSER [Concomitant]
     Active Substance: DIFLUPREDNATE
  12. LENVIMA [Suspect]
     Active Substance: LENVATINIB
     Route: 048
     Dates: start: 20151010, end: 20151014
  13. NORVASC [Concomitant]
     Active Substance: AMLODIPINE BESYLATE

REACTIONS (4)
  - Hepatic function abnormal [Recovering/Resolving]
  - Platelet count decreased [Recovering/Resolving]
  - Hypertension [Recovering/Resolving]
  - Proteinuria [Recovered/Resolved]

NARRATIVE: CASE EVENT DATE: 20151009
